FAERS Safety Report 12771178 (Version 1)
Quarter: 2016Q3

REPORT INFORMATION
  Report Type: Spontaneous
  Country: US (occurrence: US)
  Receive Date: 20160921
  Receipt Date: 20160921
  Transmission Date: 20161109
  Serious: Yes (Other)
  Sender: FDA-Public Use
  Company Number: None

PATIENT
  Age: 58 Year
  Sex: Female
  Weight: 56.25 kg

DRUGS (2)
  1. HYOSCYAMINE 0.125MG SUBLINGUAL [Suspect]
     Active Substance: HYOSCYAMINE
     Indication: IRRITABLE BOWEL SYNDROME
     Route: 060
     Dates: start: 20160810, end: 20160824
  2. LEVOTHYROXINE. [Concomitant]
     Active Substance: LEVOTHYROXINE

REACTIONS (7)
  - Vision blurred [None]
  - Unevaluable event [None]
  - Dry mouth [None]
  - Balance disorder [None]
  - Chills [None]
  - Tremor [None]
  - Dysarthria [None]

NARRATIVE: CASE EVENT DATE: 20160811
